FAERS Safety Report 9444191 (Version 1)
Quarter: 2013Q3

REPORT INFORMATION
  Report Type: Spontaneous
  Country: US (occurrence: None)
  Receive Date: 20130806
  Receipt Date: 20130806
  Transmission Date: 20140515
  Serious: No
  Sender: FDA-Public Use
  Company Number: None

PATIENT
  Sex: Male

DRUGS (1)
  1. DEPAKENE [Suspect]
     Dosage: 25MG/5ML 2TSP AM/ 2TSP PM/ 3TSP AT NIGHT

REACTIONS (2)
  - Epilepsy [None]
  - Product substitution issue [None]
